FAERS Safety Report 9445023 (Version 2)
Quarter: 2013Q3

REPORT INFORMATION
  Report Type: Spontaneous
  Country: US (occurrence: None)
  Receive Date: 20130731
  Receipt Date: 20130808
  Transmission Date: 20140515
  Serious: Yes (Hospitalization)
  Sender: FDA-Public Use
  Company Number: 2013PROUSA03009

PATIENT
  Age: 72 Year
  Sex: Male
  Weight: 106.1 kg

DRUGS (9)
  1. PROVENGE [Suspect]
     Indication: PROSTATE CANCER METASTATIC
     Dosage: SINGLE
     Route: 042
     Dates: start: 20130610, end: 20130610
  2. ASPIRIN (ACETYLSALICYLIC ACID) [Concomitant]
  3. CALCIUM (CALCIUM) [Concomitant]
  4. MIRAPEX (PRAMIPEXOLE DIHYDROCHLORIDE) [Concomitant]
  5. FOSINOPRIL SODIUM (FOSINOPRIL SODIUM) [Concomitant]
  6. LANTUS (INSULIN GLARGINE) [Concomitant]
  7. TOPROL (METOPROLOL SUCCINATE) [Concomitant]
  8. ADALAT CC (NIFEDIPINE) [Concomitant]
  9. HYDROCHLOROTHIAZIDE (HYDROCHLOROTHIAZIDE) [Concomitant]

REACTIONS (2)
  - Sepsis [None]
  - Bacterial sepsis [None]
